FAERS Safety Report 18054787 (Version 1)
Quarter: 2020Q3

REPORT INFORMATION
  Report Type: Spontaneous
  Country: US (occurrence: US)
  Receive Date: 20200722
  Receipt Date: 20200722
  Transmission Date: 20201103
  Serious: Yes (Hospitalization)
  Sender: FDA-Public Use
  Company Number: US-PFIZER INC-9941765

PATIENT
  Age: 50 Year
  Sex: Male

DRUGS (1)
  1. VIAGRA [Suspect]
     Active Substance: SILDENAFIL CITRATE
     Indication: ERECTILE DYSFUNCTION
     Dosage: PRN
     Dates: start: 1998

REACTIONS (7)
  - Hypotension [Recovered/Resolved]
  - Pulmonary vascular disorder [Recovered/Resolved]
  - Cardiac murmur [Recovered/Resolved]
  - Atrial fibrillation [Recovered/Resolved]
  - Wheezing [Recovered/Resolved]
  - Left ventricular hypertrophy [Recovered/Resolved]
  - Breath sounds abnormal [Recovered/Resolved]

NARRATIVE: CASE EVENT DATE: 19981012
